FAERS Safety Report 9735621 (Version 1)
Quarter: 2013Q4

REPORT INFORMATION
  Report Type: Spontaneous
  Country: JP (occurrence: JP)
  Receive Date: 20131206
  Receipt Date: 20131206
  Transmission Date: 20140711
  Serious: Yes (Death, Other)
  Sender: FDA-Public Use
  Company Number: PHHY2013JP141583

PATIENT
  Sex: 0

DRUGS (10)
  1. NEORAL [Suspect]
     Dosage: 150 MG, UNK
     Route: 064
     Dates: start: 20130228
  2. PREDONINE [Concomitant]
     Dosage: 60 MG, DAILY
     Route: 064
     Dates: start: 20130206
  3. ALDOMET [Concomitant]
     Dosage: 750 MG, UNK
     Route: 064
     Dates: start: 20130208
  4. K-SUPPLY [Concomitant]
     Dosage: 1800 MG, UNK
     Route: 064
     Dates: start: 20130210
  5. GOREI-SAN [Concomitant]
     Dosage: 7.5 G, UNK
     Route: 064
     Dates: start: 20130208, end: 20130317
  6. ALDACTONE [Concomitant]
     Dosage: 50 MG, UNK
     Route: 064
     Dates: start: 20130209
  7. RHYTHMY [Concomitant]
     Dosage: 1 MG, UNK
     Route: 064
     Dates: start: 20130219, end: 20130317
  8. LENDORMIN [Concomitant]
     Dosage: 0.25 MG, UNK
     Route: 064
     Dates: start: 20130309
  9. DIART [Concomitant]
     Dosage: 60 MG, UNK
     Route: 064
     Dates: start: 20130302, end: 20130313
  10. DECADRAN [Concomitant]
     Dosage: 6 MG, UNK
     Route: 064
     Dates: start: 20130302, end: 20130308

REACTIONS (4)
  - Stillbirth [Fatal]
  - Atrioventricular block complete [Fatal]
  - Low birth weight baby [Unknown]
  - Foetal exposure during pregnancy [Unknown]
